FAERS Safety Report 19101126 (Version 1)
Quarter: 2021Q2

REPORT INFORMATION
  Report Type: Spontaneous
  Country: US (occurrence: US)
  Receive Date: 20210407
  Receipt Date: 20210407
  Transmission Date: 20210717
  Serious: Yes (Death, Hospitalization, Other)
  Sender: FDA-Public Use
  Company Number: US-SA-2021SA060069

PATIENT
  Age: 53 Year
  Sex: Female

DRUGS (20)
  1. LEVOTHYROXINE SODIUM. [Concomitant]
     Active Substance: LEVOTHYROXINE SODIUM
     Dosage: 175 UG
  2. ONDANSETRON [Concomitant]
     Active Substance: ONDANSETRON
     Dosage: 4 MG, Q6H, PRN
     Route: 042
  3. SENNOSIDES. [Concomitant]
     Active Substance: SENNOSIDES
     Dosage: 1 DF, 8.6?50 MG BID, PRN
     Route: 048
  4. AUBAGIO [Suspect]
     Active Substance: TERIFLUNOMIDE
     Indication: MULTIPLE SCLEROSIS
     Dosage: 14 MG, QD
     Route: 048
     Dates: start: 2016
  5. ACETAMINOPHEN. [Concomitant]
     Active Substance: ACETAMINOPHEN
     Dosage: 650 MG, Q6H, PRN
     Route: 048
  6. LEVOTHYROXINE SODIUM. [Concomitant]
     Active Substance: LEVOTHYROXINE SODIUM
     Dosage: 125 UG, QD
     Route: 048
  7. MIDODRINE HYDROCHLORIDE. [Concomitant]
     Active Substance: MIDODRINE HYDROCHLORIDE
     Dosage: 10 MG, TID BEFORE MEALS
     Route: 048
  8. CALCIUM [Concomitant]
     Active Substance: CALCIUM
  9. DEXTROSE. [Concomitant]
     Active Substance: DEXTROSE
     Dosage: 50 ML, QH, PRN
     Route: 042
  10. TORSEMIDE. [Concomitant]
     Active Substance: TORSEMIDE
     Dosage: 5 MG, QD
     Route: 048
  11. AMIODARONE HCL [Concomitant]
     Active Substance: AMIODARONE HYDROCHLORIDE
     Dosage: 200 MG
     Route: 048
  12. VITAMIN D [COLECALCIFEROL] [Concomitant]
     Active Substance: CHOLECALCIFEROL
  13. DOBUTAMINE [Concomitant]
     Active Substance: DOBUTAMINE HYDROCHLORIDE
     Dosage: 2?20 MCG/KG/MIN
     Route: 042
  14. HEPARIN SODIUM, PORCINE [Concomitant]
     Active Substance: HEPARIN SODIUM
     Dosage: 28 UNITS/KG/HOUR
     Route: 042
  15. SODIUM BICARBONATE. [Concomitant]
     Active Substance: SODIUM BICARBONATE
     Dosage: 1300 MG, TID
     Route: 048
  16. ENTRESTO [Concomitant]
     Active Substance: SACUBITRIL\VALSARTAN
     Dosage: 24?26 MG
     Route: 048
  17. AMANTADINE HYDROCHLORIDE. [Concomitant]
     Active Substance: AMANTADINE HYDROCHLORIDE
     Dosage: 100 MG, 2 TABLETS QD
     Route: 048
  18. FERROUS SULFATE. [Concomitant]
     Active Substance: FERROUS SULFATE
     Dosage: 325 MG, QD WITH BREAKFAST
     Route: 048
  19. COREG CR [Concomitant]
     Active Substance: CARVEDILOL PHOSPHATE
     Dosage: 6.25 MG
     Route: 048
  20. POTASSIUM CHLORIDE. [Concomitant]
     Active Substance: POTASSIUM CHLORIDE
     Dosage: 20 MEQ
     Route: 048

REACTIONS (19)
  - Constipation [Unknown]
  - Hepatic failure [Unknown]
  - Skin abrasion [Unknown]
  - Ventricular tachycardia [Fatal]
  - Blood creatinine increased [Unknown]
  - Gait disturbance [Unknown]
  - Anxiety [Unknown]
  - Muscular weakness [Recovering/Resolving]
  - Urinary incontinence [Unknown]
  - Syncope [Unknown]
  - Hypothyroidism [Unknown]
  - Ejection fraction decreased [Fatal]
  - Fatigue [Fatal]
  - Renal impairment [Unknown]
  - Insomnia [Unknown]
  - Cardiac failure chronic [Fatal]
  - Balance disorder [Recovering/Resolving]
  - Fall [Unknown]
  - Carotid artery stenosis [Unknown]

NARRATIVE: CASE EVENT DATE: 20190925
